FAERS Safety Report 13845381 (Version 18)
Quarter: 2018Q4

REPORT INFORMATION
  Report Type: Report from Study
  Country: CA (occurrence: CA)
  Receive Date: 20170808
  Receipt Date: 20181004
  Transmission Date: 20190204
  Serious: Yes (Hospitalization, Other)
  Sender: FDA-Public Use
  Company Number: CA-BRISTOL-MYERS SQUIBB COMPANY-BMS-2017-069981

PATIENT
  Age: 71 Year
  Sex: Female

DRUGS (3)
  1. METOTREXATE [Concomitant]
     Active Substance: METHOTREXATE SODIUM
     Indication: PRODUCT USED FOR UNKNOWN INDICATION
     Dosage: UNK
     Route: 065
  2. ABATACEPT [Suspect]
     Active Substance: ABATACEPT
     Indication: PRODUCT USED FOR UNKNOWN INDICATION
     Dosage: 125 MG, QWK
     Route: 058
     Dates: start: 20180202
  3. ABATACEPT [Suspect]
     Active Substance: ABATACEPT
     Indication: RHEUMATOID ARTHRITIS
     Dosage: 125 MG, QWK
     Route: 058
     Dates: start: 20170510

REACTIONS (14)
  - Localised infection [Recovered/Resolved]
  - Tooth disorder [Unknown]
  - Erythema [Unknown]
  - Wound infection [Recovering/Resolving]
  - Breast abscess [Recovering/Resolving]
  - Breast cyst [Unknown]
  - Pruritus [Not Recovered/Not Resolved]
  - Rash generalised [Recovering/Resolving]
  - Blood pressure increased [Unknown]
  - Pruritus generalised [Not Recovered/Not Resolved]
  - Arthropathy [Unknown]
  - Pain in extremity [Unknown]
  - Limb injury [Recovering/Resolving]
  - Tooth extraction [Unknown]

NARRATIVE: CASE EVENT DATE: 20170811
